FAERS Safety Report 20670697 (Version 3)
Quarter: 2022Q2

REPORT INFORMATION
  Report Type: Report from Study
  Country: UA (occurrence: UA)
  Receive Date: 20220404
  Receipt Date: 20220523
  Transmission Date: 20220721
  Serious: Yes (Life-Threatening, Hospitalization, Disabling, Other)
  Sender: FDA-Public Use
  Company Number: UA-CELGENE-UKR-20220101939

PATIENT
  Sex: Male
  Weight: 90 kg

DRUGS (50)
  1. Salofalk [Concomitant]
     Indication: Colitis ulcerative
     Dosage: 1500 MILLIGRAM
     Route: 048
     Dates: start: 201505, end: 20191019
  2. Salofalk [Concomitant]
     Dosage: 4000 MILLIGRAM
     Route: 048
     Dates: start: 20191020, end: 20191117
  3. Salofalk [Concomitant]
     Dosage: 1500 MILLIGRAM
     Route: 048
     Dates: start: 20191118
  4. INDAPAMIDE\PERINDOPRIL ARGININE [Concomitant]
     Active Substance: INDAPAMIDE\PERINDOPRIL ARGININE
     Indication: Hypertension
     Dosage: DAILY DOSE : 1 TABLET?UNIT DOSE : 1 TABLET?1 TABLET
     Route: 048
     Dates: start: 2009
  5. INDAPAMIDE\PERINDOPRIL ARGININE [Concomitant]
     Active Substance: INDAPAMIDE\PERINDOPRIL ARGININE
     Indication: Myocardial ischaemia
  6. INDAPAMIDE\PERINDOPRIL ARGININE [Concomitant]
     Active Substance: INDAPAMIDE\PERINDOPRIL ARGININE
     Indication: Cardiac disorder
  7. DIMEXID [Concomitant]
     Indication: Synovitis
     Route: 061
     Dates: start: 20180901, end: 20180910
  8. PROCAINE [Concomitant]
     Active Substance: PROCAINE
     Indication: Synovitis
     Route: 061
     Dates: start: 20180901, end: 20180910
  9. HYDROCORTISONE [Concomitant]
     Active Substance: HYDROCORTISONE
     Indication: Synovitis
     Route: 061
     Dates: start: 20180901, end: 20180910
  10. HYDROCORTISONE [Concomitant]
     Active Substance: HYDROCORTISONE
     Indication: Synovitis
     Dosage: .7143 PERCENT
     Route: 061
     Dates: start: 20201017, end: 20201030
  11. KETOROLAC TROMETHAMINE [Concomitant]
     Active Substance: KETOROLAC TROMETHAMINE
     Indication: Synovitis
     Dosage: DAILY DOSE : 1 MILLIGRAM/MILLILITERS?TOTAL DOSE : 9 MILLIGRAM/MILLILITERS?UNIT DOSE : 1 MILLIGRAM/MI
     Route: 030
     Dates: start: 20180901, end: 20180910
  12. KETOROLAC TROMETHAMINE [Concomitant]
     Active Substance: KETOROLAC TROMETHAMINE
     Indication: Prostatic adenoma
     Dosage: FREQUENCY TEXT: AS NEEDED
     Route: 030
     Dates: start: 20200113, end: 20200114
  13. Revmoxicam [Concomitant]
     Indication: Synovitis
     Dosage: 1 AMPOULE
     Route: 030
     Dates: start: 20180905, end: 20180909
  14. Moviksikam [Concomitant]
     Indication: Synovitis
     Dosage: 15 MILLIGRAM
     Route: 048
     Dates: start: 20180910, end: 20180918
  15. AMINO ACIDS\DEXTROSE\ELECTROLYTES NOS [Concomitant]
     Active Substance: AMINO ACIDS\DEXTROSE\ELECTROLYTES NOS
     Indication: Synovitis
     Dosage: DAILY DOSE : 1 MILLIGRAM/MILLILITERS?TOTAL DOSE : 9 MILLIGRAM/MILLILITERS?UNIT DOSE : 1 MILLIGRAM/MI
     Route: 030
     Dates: start: 20180905, end: 20180914
  16. POLYETHYLENE GLYCOL 4000\POTASSIUM CHLORIDE\SODIUM BICARBONATE\SODIUM [Concomitant]
     Active Substance: POLYETHYLENE GLYCOL 4000\POTASSIUM CHLORIDE\SODIUM BICARBONATE\SODIUM CHLORIDE\SODIUM SULFATE
     Indication: Colonoscopy
     Dosage: FREQUENCY TEXT: OTHER (FROM 6 PM TO 10 PM)?4 SACHETS
     Route: 048
     Dates: start: 20171227, end: 20171227
  17. POLYETHYLENE GLYCOL 4000\POTASSIUM CHLORIDE\SODIUM BICARBONATE\SODIUM [Concomitant]
     Active Substance: POLYETHYLENE GLYCOL 4000\POTASSIUM CHLORIDE\SODIUM BICARBONATE\SODIUM CHLORIDE\SODIUM SULFATE
     Dosage: FREQUENCY TEXT: OTHER (FROM 6 PM TO 10 PM)?4 SACHETS
     Route: 048
     Dates: start: 20181122, end: 20181122
  18. POLYETHYLENE GLYCOL 4000\POTASSIUM CHLORIDE\SODIUM BICARBONATE\SODIUM [Concomitant]
     Active Substance: POLYETHYLENE GLYCOL 4000\POTASSIUM CHLORIDE\SODIUM BICARBONATE\SODIUM CHLORIDE\SODIUM SULFATE
     Dosage: FREQUENCY TEXT: OTHER (FROM 6 PM TO 10 PM)?4 SACHETS
     Route: 048
     Dates: start: 20191027, end: 20191027
  19. POLYETHYLENE GLYCOL 4000\POTASSIUM CHLORIDE\SODIUM BICARBONATE\SODIUM [Concomitant]
     Active Substance: POLYETHYLENE GLYCOL 4000\POTASSIUM CHLORIDE\SODIUM BICARBONATE\SODIUM CHLORIDE\SODIUM SULFATE
     Dosage: FREQUENCY TEXT: OTHER (FROM 6 PM TO 10 PM)?4 SACHETS
     Route: 048
     Dates: start: 20200928, end: 20200928
  20. POLYETHYLENE GLYCOL 4000\POTASSIUM CHLORIDE\SODIUM BICARBONATE\SODIUM [Concomitant]
     Active Substance: POLYETHYLENE GLYCOL 4000\POTASSIUM CHLORIDE\SODIUM BICARBONATE\SODIUM CHLORIDE\SODIUM SULFATE
     Dosage: FREQUENCY TEXT: OTHER (FROM 6 PM TO 10 PM)?4 SACHETS
     Route: 048
     Dates: start: 20210830, end: 20210830
  21. MEBEVERINE [Concomitant]
     Active Substance: MEBEVERINE
     Indication: Colitis ulcerative
     Dosage: FREQUENCY TEXT: AS NEEDED
     Route: 048
     Dates: start: 20191020, end: 20191117
  22. Satsef [Concomitant]
     Indication: Prostatic adenoma
     Dosage: FREQUENCY TEXT: NOT PROVIDED
     Route: 042
     Dates: start: 20200113, end: 20200117
  23. ABIFLOX [Concomitant]
     Indication: Prostatic adenoma
     Dosage: 500 MILLIGRAM
     Route: 048
     Dates: start: 20200113, end: 20200113
  24. HEPARIN [Concomitant]
     Active Substance: HEPARIN SODIUM
     Indication: Embolism
     Dosage: 5000 U
     Route: 042
     Dates: start: 20200113, end: 20200114
  25. HEPARIN [Concomitant]
     Active Substance: HEPARIN SODIUM
     Indication: Prostatic adenoma
  26. Trisol [Concomitant]
     Indication: Prostatic adenoma
     Dosage: DAILY DOSE : 400 MILLIGRAM/MILLILITERS?UNIT DOSE : 400 MILLIGRAM/MILLILITERS?400 MILLIGRAM/MILLILITE
     Route: 042
     Dates: start: 20200113, end: 20200114
  27. Essentiale N forte [Concomitant]
     Indication: Gamma-glutamyltransferase
     Dosage: DAILY DOSE : 6 CAPSULE?TOTAL DOSE : 78 CAPSULE?UNIT DOSE : 2 CAPSULE?6 CAPSULE
     Route: 048
     Dates: start: 20200211, end: 20200224
  28. Essentiale N forte [Concomitant]
     Indication: Alanine aminotransferase increased
  29. HOMEOPATHICS [Concomitant]
     Active Substance: HOMEOPATHICS
     Indication: Leukocytosis
     Dosage: DAILY DOSE : 3 TABLET?TOTAL DOSE : 39 TABLET?UNIT DOSE : 1 TABLET?3 TABLET
     Route: 048
     Dates: start: 20200211, end: 20200224
  30. Olefen-AF [Concomitant]
     Indication: Chondritis
     Dosage: 200 MILLIGRAM
     Route: 048
     Dates: start: 20201017, end: 20201026
  31. Olefen-AF [Concomitant]
     Indication: Synovitis
  32. Dona [Concomitant]
     Indication: Osteoarthritis
     Dosage: DAILY DOSE : 9 MILLIGRAM/MILLILITERS?TOTAL DOSE : 117 MILLIGRAM/MILLILITERS?UNIT DOSE : 3 MILLIGRAM/
     Route: 030
     Dates: start: 20201017, end: 20201030
  33. MODERNA COVID-19 VACCINE [Concomitant]
     Active Substance: ELASOMERAN
     Indication: COVID-19
     Dosage: DAILY DOSE : .5 MILLIGRAM/MILLILITERS?UNIT DOSE : .5 MILLIGRAM/MILLILITERS?.5 MILLIGRAM/MILLILITERS
     Route: 030
     Dates: start: 20210727, end: 20210727
  34. MODERNA COVID-19 VACCINE [Concomitant]
     Active Substance: ELASOMERAN
     Indication: Prophylaxis
     Dosage: DAILY DOSE : .5 MILLIGRAM/MILLILITERS?UNIT DOSE : .5 MILLIGRAM/MILLILITERS?.5 MILLIGRAM/MILLILITERS
     Route: 030
     Dates: start: 20210825, end: 20210825
  35. REOSORBILACT [Concomitant]
     Active Substance: CALCIUM CHLORIDE\MAGNESIUM CHLORIDE\POTASSIUM CHLORIDE\SODIUM CHLORIDE\SODIUM LACTATE\SORBITOL
     Indication: Intestinal obstruction
     Dosage: DAILY DOSE : 200 MILLIGRAM/MILLILITERS?TOTAL DOSE : 1200 MILLIGRAM/MILLILITERS?UNIT DOSE : 200 MILLI
     Route: 042
     Dates: start: 20220108, end: 20220114
  36. REOSORBILACT [Concomitant]
     Active Substance: CALCIUM CHLORIDE\MAGNESIUM CHLORIDE\POTASSIUM CHLORIDE\SODIUM CHLORIDE\SODIUM LACTATE\SORBITOL
     Indication: Intestinal obstruction
  37. RINGERS SOLUTION [Concomitant]
     Active Substance: CALCIUM CHLORIDE\POTASSIUM CHLORIDE\SODIUM CHLORIDE
     Indication: Intestinal obstruction
     Dosage: DAILY DOSE : 200 MILLIGRAM/MILLILITERS?TOTAL DOSE : 1200 MILLIGRAM/MILLILITERS?UNIT DOSE : 200 MILLI
     Route: 042
     Dates: start: 20220108, end: 20220114
  38. METOCLOPRAMIDE [Concomitant]
     Active Substance: METOCLOPRAMIDE
     Indication: Intestinal obstruction
     Dosage: 1 AMPULE 5MG/5ML
     Route: 030
     Dates: start: 20220108, end: 20220114
  39. METOCLOPRAMIDE [Concomitant]
     Active Substance: METOCLOPRAMIDE
     Indication: Intestinal obstruction
  40. PLATYPHYLLINE [Concomitant]
     Indication: Intestinal obstruction
     Dosage: 1 AMPULE 2G/5ML
     Route: 030
     Dates: start: 20220108, end: 20220114
  41. PLATYPHYLLINE [Concomitant]
     Indication: Intestinal obstruction
  42. Analgin [Concomitant]
     Indication: Intestinal obstruction
     Dosage: DAILY DOSE : 2 MILLIGRAM/MILLILITERS?TOTAL DOSE : 12 MILLIGRAM/MILLILITERS?UNIT DOSE : 2 MILLIGRAM/M
     Route: 030
     Dates: start: 20220108, end: 20220114
  43. DEXTROSE [Concomitant]
     Active Substance: DEXTROSE
     Indication: Intestinal obstruction
     Dosage: DAILY DOSE : 100 MILLIGRAM/MILLILITERS?TOTAL DOSE : 600 MILLIGRAM/MILLILITERS?UNIT DOSE : 100 MILLIG
     Route: 030
     Dates: start: 20220108, end: 20220114
  44. DEXTROSE [Concomitant]
     Active Substance: DEXTROSE
     Indication: Intestinal obstruction
  45. CEFTRIAXONE [Concomitant]
     Active Substance: CEFTRIAXONE
     Indication: Intestinal obstruction
     Dosage: 2000 MILLIGRAM
     Route: 030
     Dates: start: 20220108, end: 20220114
  46. AMIZON [Concomitant]
     Indication: Obstructive airways disorder
     Dosage: 1500 MILLIGRAM
     Route: 030
     Dates: start: 20220127, end: 20220131
  47. AMIZON [Concomitant]
     Indication: Respiratory tract infection
     Dosage: 1500 MILLIGRAM
     Route: 030
     Dates: start: 20220128, end: 20220201
  48. Ascocin [Concomitant]
     Indication: Viral infection
     Dosage: DAILY DOSE : 1 TABLET?TOTAL DOSE : 12 TABLET?UNIT DOSE : 1 TABLET?1 TABLET
     Route: 048
     Dates: start: 20220126, end: 20220207
  49. Ascazin [Concomitant]
     Indication: Respiratory tract infection
     Dosage: 1 TAB
     Route: 048
     Dates: start: 20220201, end: 20220207
  50. DICLOFENAC DIETHYLAMINE [Concomitant]
     Active Substance: DICLOFENAC DIETHYLAMINE
     Indication: Synovitis
     Dosage: FREQUENCY TEXT: OTHER
     Route: 050
     Dates: start: 20201017, end: 20201030

REACTIONS (2)
  - Colorectal cancer stage II [Unknown]
  - Intestinal obstruction [Recovered/Resolved with Sequelae]

NARRATIVE: CASE EVENT DATE: 20220106
